FAERS Safety Report 5590339-9 (Version None)
Quarter: 2008Q1

REPORT INFORMATION
  Report Type: 
  Country: None (occurrence: None)
  Receive Date: 20080109
  Receipt Date: 20071228
  Transmission Date: 20080703
  Serious: Yes (Other)
  Sender: FDA-Public Use
  Company Number: 2007333814

PATIENT
  Age: 6 Year
  Sex: Male

DRUGS (1)
  1. CHLORPHENIRAMINE / PHENYLEPHRINE (PHENYLEPHRINE HYDROCHLORIDE, CHLORPH [Suspect]

REACTIONS (3)
  - AGITATION [None]
  - HALLUCINATION [None]
  - SCREAMING [None]
